FAERS Safety Report 15453562 (Version 4)
Quarter: 2019Q2

REPORT INFORMATION
  Report Type: Report from Study
  Country: US (occurrence: US)
  Receive Date: 20181001
  Receipt Date: 20190515
  Transmission Date: 20190711
  Serious: Yes (Hospitalization)
  Sender: FDA-Public Use
  Company Number: US-ACTELION-A-US2018-174253

PATIENT
  Age: 54 Year
  Sex: Female

DRUGS (1)
  1. OPSUMIT [Suspect]
     Active Substance: MACITENTAN
     Indication: PULMONARY HYPERTENSION
     Dosage: 10 MG, UNK
     Route: 048
     Dates: start: 20180619

REACTIONS (14)
  - Pleural effusion [Unknown]
  - Pulmonary oedema [Recovering/Resolving]
  - Fatigue [Unknown]
  - Coronary arterial stent insertion [Unknown]
  - Oxygen saturation decreased [Unknown]
  - Lethargy [Unknown]
  - Decreased appetite [Unknown]
  - Diarrhoea [Unknown]
  - Oedema peripheral [Recovering/Resolving]
  - Ocular hyperaemia [Unknown]
  - Therapeutic product ineffective [Unknown]
  - Dyspnoea [Unknown]
  - Lacrimation increased [Unknown]
  - Depression [Unknown]

NARRATIVE: CASE EVENT DATE: 201806
